FAERS Safety Report 23329379 (Version 1)
Quarter: 2023Q4

REPORT INFORMATION
  Report Type: Spontaneous
  Country: US (occurrence: US)
  Receive Date: 20231222
  Receipt Date: 20231222
  Transmission Date: 20240110
  Serious: Yes (Other)
  Sender: FDA-Public Use
  Company Number: US-CIPLA LTD.-2023US07950

PATIENT

DRUGS (12)
  1. DICLOFENAC [Suspect]
     Active Substance: DICLOFENAC
     Indication: Arthralgia
     Dosage: UNK
     Route: 061
     Dates: start: 202210
  2. DICLOFENAC [Suspect]
     Active Substance: DICLOFENAC
     Indication: Back pain
  3. METOPROLOL [Concomitant]
     Active Substance: METOPROLOL
     Indication: Product used for unknown indication
     Dosage: 50 MILLIGRAM, QD (FOR 10 YEARS)
     Route: 065
     Dates: start: 2013
  4. NORTRIPTYLINE [Concomitant]
     Active Substance: NORTRIPTYLINE
     Indication: Dizziness
     Dosage: 75 MILLIGRAM, QD  (FOR 9 YEARS)
     Route: 065
     Dates: start: 2014
  5. LIPITOR [Concomitant]
     Active Substance: ATORVASTATIN CALCIUM
     Indication: Blood cholesterol abnormal
     Dosage: 80 MILLIGRAM, QD (FOR 20 YEARS)
     Route: 065
     Dates: start: 2003
  6. PRILOSEC [Concomitant]
     Active Substance: OMEPRAZOLE MAGNESIUM
     Indication: Dyspepsia
     Dosage: 20 MILLIGRAM, QD (FOR 10 YEARS)
     Route: 065
     Dates: start: 2013
  7. VITAMIN D3 [Concomitant]
     Active Substance: CHOLECALCIFEROL
     Indication: Osteoporosis
     Dosage: 5000 IU INTERNATIONAL UNIT(S) (1 TABLET ONCE A WEEK, (FOR 5 YEARS))
     Route: 065
     Dates: start: 2018
  8. LEVOTHYROXINE SODIUM [Concomitant]
     Active Substance: LEVOTHYROXINE SODIUM
     Indication: Thyroid disorder
     Dosage: 4200 MILLIGRAM, QD (FOR 4 MONTHS) (1 TABLET)
     Route: 065
     Dates: start: 202309, end: 202311
  9. MELATONIN [Concomitant]
     Active Substance: MELATONIN
     Indication: Sleep disorder
     Dosage: UNK (FOR 9 YEARS)
     Route: 065
     Dates: start: 2014
  10. AMLODIPINE [Concomitant]
     Active Substance: AMLODIPINE BESYLATE
     Indication: Hypertension
     Dosage: 10 MILLIGRAM, QD (1 TABLET) (FOR YEARS)
     Route: 065
  11. ALICE [PARACETAMOL] [Concomitant]
     Indication: Back pain
     Dosage: UNK
     Route: 065
  12. ALICE [PARACETAMOL] [Concomitant]
     Indication: Arthralgia

REACTIONS (12)
  - Hypothyroidism [Not Recovered/Not Resolved]
  - Dyspnoea [Not Recovered/Not Resolved]
  - Rash [Not Recovered/Not Resolved]
  - Skin atrophy [Not Recovered/Not Resolved]
  - Rash macular [Not Recovered/Not Resolved]
  - Fatigue [Not Recovered/Not Resolved]
  - Dry mouth [Not Recovered/Not Resolved]
  - Asthenia [Not Recovered/Not Resolved]
  - Pain of skin [Not Recovered/Not Resolved]
  - Paraesthesia [Not Recovered/Not Resolved]
  - Tendonitis [Not Recovered/Not Resolved]
  - Off label use [Unknown]

NARRATIVE: CASE EVENT DATE: 20221001
